FAERS Safety Report 7666836-9 (Version None)
Quarter: 2011Q3

REPORT INFORMATION
  Report Type: 
  Country: None (occurrence: None)
  Receive Date: 20110806
  Receipt Date: 20110601
  Transmission Date: 20111222
  Serious: No
  Sender: FDA-Public Use
  Company Number: US-ABBOTT-11P-163-0730303-00

PATIENT
  Sex: Male

DRUGS (4)
  1. NIASPAN [Suspect]
     Indication: BLOOD CHOLESTEROL INCREASED
     Dosage: PEACH COLORED PILLS WITH KOS ON THEM
     Route: 048
     Dates: start: 20110531
  2. ASPIRIN [Concomitant]
     Indication: PRODUCT USED FOR UNKNOWN INDICATION
     Dosage: AT HOUR OF SLEEP 30 MIN BEFORE NIASPAN
     Route: 048
  3. NIASPAN [Suspect]
     Dosage: WHITE TABLETS WITH LOGO AND 500 IN BLACK
     Route: 048
     Dates: start: 20110427, end: 20110531
  4. CRESTOR [Concomitant]
     Indication: PRODUCT USED FOR UNKNOWN INDICATION

REACTIONS (1)
  - PRURITUS [None]
